FAERS Safety Report 12942669 (Version 1)
Quarter: 2016Q4

REPORT INFORMATION
  Report Type: Spontaneous
  Country: US (occurrence: US)
  Receive Date: 20161114
  Receipt Date: 20161114
  Transmission Date: 20170207
  Serious: No
  Sender: FDA-Public Use
  Company Number: US-ASTRAZENECA-2016SF16218

PATIENT
  Age: 99 Year
  Sex: Female

DRUGS (6)
  1. SEROQUEL [Suspect]
     Active Substance: QUETIAPINE FUMARATE
     Indication: SCHIZOPHRENIA
     Dosage: 300.0MG UNKNOWN
     Route: 048
  2. SEROQUEL [Suspect]
     Active Substance: QUETIAPINE FUMARATE
     Indication: SCHIZOPHRENIA
     Dosage: 600.0MG UNKNOWN
     Route: 048
     Dates: start: 20161029
  3. SEROQUEL [Suspect]
     Active Substance: QUETIAPINE FUMARATE
     Indication: DEPRESSION
     Dosage: 400.0MG UNKNOWN
     Route: 048
     Dates: start: 201610
  4. SEROQUEL [Suspect]
     Active Substance: QUETIAPINE FUMARATE
     Indication: DEPRESSION
     Dosage: 600.0MG UNKNOWN
     Route: 048
     Dates: start: 20161029
  5. SEROQUEL [Suspect]
     Active Substance: QUETIAPINE FUMARATE
     Indication: DEPRESSION
     Dosage: 300.0MG UNKNOWN
     Route: 048
  6. SEROQUEL [Suspect]
     Active Substance: QUETIAPINE FUMARATE
     Indication: SCHIZOPHRENIA
     Dosage: 400.0MG UNKNOWN
     Route: 048
     Dates: start: 201610

REACTIONS (10)
  - Dysarthria [Unknown]
  - Fatigue [Unknown]
  - Memory impairment [Unknown]
  - Confusional state [Unknown]
  - Constipation [Unknown]
  - Middle insomnia [Unknown]
  - Secretion discharge [Unknown]
  - Somnolence [Unknown]
  - Malaise [Unknown]
  - Anxiety [Unknown]

NARRATIVE: CASE EVENT DATE: 201610
